FAERS Safety Report 11507098 (Version 1)
Quarter: 2015Q3

REPORT INFORMATION
  Report Type: Report from Study
  Country: BR (occurrence: BR)
  Receive Date: 20150915
  Receipt Date: 20150915
  Transmission Date: 20151125
  Serious: Yes (Death)
  Sender: FDA-Public Use
  Company Number: PHHY2015BR110882

PATIENT
  Age: 79 Year
  Sex: Female
  Weight: 65 kg

DRUGS (1)
  1. DIOVAN [Suspect]
     Active Substance: VALSARTAN
     Indication: CARDIAC DISORDER
     Dosage: 2 DF, QD

REACTIONS (5)
  - Condition aggravated [Fatal]
  - Cardiac disorder [Fatal]
  - Congestive cardiomyopathy [Fatal]
  - Hypersensitivity [Unknown]
  - Product use issue [Unknown]
